FAERS Safety Report 8007205-1 (Version None)
Quarter: 2011Q4

REPORT INFORMATION
  Report Type: 
  Country: None (occurrence: None)
  Receive Date: 20111227
  Receipt Date: 20111219
  Transmission Date: 20120403
  Serious: Yes (Hospitalization, Congenital Anomaly, Other)
  Sender: FDA-Public Use
  Company Number: US-PFIZER INC-2011283016

PATIENT
  Sex: Male

DRUGS (4)
  1. AMPICILLIN [Concomitant]
     Indication: VAGINAL INFECTION
     Dosage: 500 MG, 2X/DAY
     Route: 064
     Dates: start: 20100505
  2. ZOLOFT [Suspect]
     Indication: DEPRESSION
     Dosage: UNK
     Route: 064
  3. BETAMETHASONE [Concomitant]
     Indication: URETHRAL PERFORATION
     Dosage: UNK,
     Route: 064
  4. FLINTSTONES MULTIPLE VITAMINS [Concomitant]
     Dosage: UNK, DAILY
     Route: 064

REACTIONS (20)
  - MATERNAL EXPOSURE DURING PREGNANCY [None]
  - VENTRICULAR SEPTAL DEFECT [None]
  - MITRAL VALVE HYPOPLASIA [None]
  - PATENT DUCTUS ARTERIOSUS [None]
  - TRICUSPID VALVE INCOMPETENCE [None]
  - CONGENITAL ARTERIAL MALFORMATION [None]
  - VENTRICULAR DYSFUNCTION [None]
  - WEIGHT GAIN POOR [None]
  - SUBCLAVIAN ARTERY STENOSIS [None]
  - ATRIAL SEPTAL DEFECT [None]
  - HYPOPLASTIC LEFT HEART SYNDROME [None]
  - MITRAL VALVE INCOMPETENCE [None]
  - AORTA HYPOPLASIA [None]
  - PULMONARY ARTERY STENOSIS CONGENITAL [None]
  - RIGHT VENTRICULAR HYPERTROPHY [None]
  - COARCTATION OF THE AORTA [None]
  - CARDIOMEGALY [None]
  - ATRIOVENTRICULAR SEPTAL DEFECT [None]
  - AORTIC VALVE INCOMPETENCE [None]
  - DYSPHAGIA [None]
